FAERS Safety Report 4960268-X (Version None)
Quarter: 2006Q1

REPORT INFORMATION
  Report Type: 
  Country: None (occurrence: None)
  Receive Date: 20060328
  Receipt Date: 20060315
  Transmission Date: 20060701
  Serious: Yes (Hospitalization)
  Sender: FDA-Public Use
  Company Number: 2006037143

PATIENT
  Age: 8 Year
  Sex: Female
  Weight: 19 kg

DRUGS (2)
  1. ZITHROMAX [Suspect]
     Indication: INFECTION PROPHYLAXIS
     Dosage: 750 MG (250 MG, 3 IN 1 D), ORAL
     Route: 048
     Dates: start: 20051121, end: 20060131
  2. BACTRIM [Suspect]
     Indication: INFECTION PROPHYLAXIS
     Dosage: (400 MG, UNKNOWN), ORAL
     Route: 048
     Dates: start: 20051121, end: 20060131

REACTIONS (2)
  - CLOSTRIDIUM COLITIS [None]
  - WEIGHT DECREASED [None]
